FAERS Safety Report 13169915 (Version 5)
Quarter: 2017Q2

REPORT INFORMATION
  Report Type: Report from Study
  Country: US (occurrence: US)
  Receive Date: 20170201
  Receipt Date: 20170530
  Transmission Date: 20170830
  Serious: Yes (Other)
  Sender: FDA-Public Use
  Company Number: PHEH2017US002787

PATIENT
  Sex: Female
  Weight: 75.74 kg

DRUGS (1)
  1. GILENYA [Suspect]
     Active Substance: FINGOLIMOD HYDROCHLORIDE
     Indication: RELAPSING-REMITTING MULTIPLE SCLEROSIS
     Dosage: 0.5 MG, QD
     Route: 048

REACTIONS (6)
  - Lip injury [Unknown]
  - Arthropathy [Unknown]
  - Loss of consciousness [Unknown]
  - Syncope [Unknown]
  - Fall [Unknown]
  - Balance disorder [Unknown]
